FAERS Safety Report 15746926 (Version 1)
Quarter: 2018Q4

REPORT INFORMATION
  Report Type: Report from Study
  Country: EG (occurrence: EG)
  Receive Date: 20181220
  Receipt Date: 20181220
  Transmission Date: 20190205
  Serious: Yes (Other)
  Sender: FDA-Public Use
  Company Number: PHHY2018EG187964

PATIENT
  Age: 54 Year
  Sex: Female

DRUGS (7)
  1. AFINITOR [Suspect]
     Active Substance: EVEROLIMUS
     Dosage: 5 MG, UNK
     Route: 065
     Dates: start: 201811
  2. SANDOSTATIN [Concomitant]
     Active Substance: OCTREOTIDE ACETATE
     Dosage: 1 DF, EVERY 14 DAYS
     Route: 065
     Dates: start: 201811
  3. CIDOPHAGE [Concomitant]
     Indication: PRODUCT USED FOR UNKNOWN INDICATION
     Dosage: UNK
     Route: 065
  4. SANDOSTATIN [Concomitant]
     Active Substance: OCTREOTIDE ACETATE
     Indication: PRODUCT USED FOR UNKNOWN INDICATION
     Dosage: 1 DF, EVERY 14 DAYS
     Route: 065
     Dates: start: 201707, end: 201708
  5. AMPITRIN [Concomitant]
     Indication: PRODUCT USED FOR UNKNOWN INDICATION
     Dosage: UNK
     Route: 065
  6. FEBURIC [Concomitant]
     Active Substance: FEBUXOSTAT
     Indication: PRODUCT USED FOR UNKNOWN INDICATION
     Route: 065
  7. AFINITOR [Suspect]
     Active Substance: EVEROLIMUS
     Indication: LUNG NEOPLASM MALIGNANT
     Dosage: 10 MG, UNK
     Route: 065
     Dates: start: 201707, end: 201710

REACTIONS (20)
  - Myocardial necrosis marker increased [Not Recovered/Not Resolved]
  - Ulcer [Recovering/Resolving]
  - Urinary tract infection [Recovering/Resolving]
  - Hypertension [Not Recovered/Not Resolved]
  - Pruritus [Not Recovered/Not Resolved]
  - Blood glucose increased [Not Recovered/Not Resolved]
  - Cataract [Recovering/Resolving]
  - Generalised oedema [Recovering/Resolving]
  - Stomatitis [Recovering/Resolving]
  - Cytogenetic abnormality [Not Recovered/Not Resolved]
  - Hallucination [Recovering/Resolving]
  - Oedema peripheral [Recovering/Resolving]
  - Seizure [Not Recovered/Not Resolved]
  - Blood uric acid increased [Recovering/Resolving]
  - Face oedema [Recovering/Resolving]
  - Pancreatic enzymes increased [Recovering/Resolving]
  - Hepatic enzyme increased [Recovering/Resolving]
  - Localised oedema [Recovering/Resolving]
  - Blood creatinine increased [Recovering/Resolving]
  - Blood thyroid stimulating hormone increased [Not Recovered/Not Resolved]

NARRATIVE: CASE EVENT DATE: 2017
